FAERS Safety Report 5370753-7 (Version None)
Quarter: 2007Q2

REPORT INFORMATION
  Report Type: 
  Country: None (occurrence: None)
  Receive Date: 20070626
  Receipt Date: 20070615
  Transmission Date: 20071010
  Serious: Yes (Death, Hospitalization)
  Sender: FDA-Public Use
  Company Number: US-KINGPHARMUSA00001-K200700747

PATIENT

DRUGS (13)
  1. ALTACE [Suspect]
     Dosage: 1.25 MG, QD
     Route: 048
     Dates: start: 20070331, end: 20070413
  2. TAZOBAC /01173601/ [Suspect]
     Indication: PNEUMONIA BACTERIAL
     Dosage: 4.5 G, TID
     Route: 042
     Dates: start: 20070326, end: 20070404
  3. AUGMENTIN /00756801/ [Suspect]
     Indication: PNEUMONIA BACTERIAL
     Dosage: 1.2 G, BID
     Route: 042
     Dates: start: 20070325, end: 20070326
  4. DURAGESIC-100 [Concomitant]
     Dosage: UNK, Q3D
     Route: 062
  5. HALDOL SOLUTAB [Concomitant]
     Dosage: 4 MG, BID
     Route: 048
  6. SERESTA [Concomitant]
     Dosage: 15 MG, QD, PM
     Route: 048
  7. FRAGMIN  /01708302/ [Concomitant]
     Route: 058
     Dates: start: 20070325
  8. TOREM  /01036501/ [Concomitant]
     Dosage: 5 MG, QD
     Route: 048
     Dates: start: 20070330
  9. K CL TAB [Concomitant]
     Dosage: UNK, UNK
     Route: 048
     Dates: start: 20070327
  10. DAFALGAN  /00020001/ [Concomitant]
     Dosage: 4 G, UNK
     Route: 048
     Dates: start: 20070406, end: 20070413
  11. ZOFRAN [Concomitant]
     Dosage: 12 MG, UNK
     Route: 048
     Dates: start: 20070408, end: 20070412
  12. NEXIUM [Concomitant]
     Dosage: 40 MG, UNK
     Route: 048
     Dates: start: 20070408, end: 20070411
  13. FIG SYRUP [Concomitant]
     Indication: CONSTIPATION
     Dosage: 20 ML, BID

REACTIONS (10)
  - ALANINE AMINOTRANSFERASE INCREASED [None]
  - ASPARTATE AMINOTRANSFERASE INCREASED [None]
  - BLOOD ALKALINE PHOSPHATASE INCREASED [None]
  - BLOOD BILIRUBIN INCREASED [None]
  - BONE PAIN [None]
  - CARDIAC FAILURE ACUTE [None]
  - CHOLESTASIS [None]
  - GENERAL PHYSICAL HEALTH DETERIORATION [None]
  - PLEURAL EFFUSION [None]
  - SINUS TACHYCARDIA [None]
